FAERS Safety Report 8857723 (Version 2)
Quarter: 2012Q4

REPORT INFORMATION
  Report Type: 
  Country: BE (occurrence: BE)
  Receive Date: 20121024
  Receipt Date: 20121119
  Transmission Date: 20130627
  Serious: Yes (Life-Threatening, Hospitalization)
  Sender: FDA-Public Use
  Company Number: BE-B.I. PHARMACEUTICALS,INC./RIDGEFIELD-2012-BL-00543BL

PATIENT
  Age: 87 Year
  Sex: Male

DRUGS (7)
  1. PRADAXA [Suspect]
     Indication: ATRIAL FIBRILLATION
     Dosage: 220 mg
     Route: 048
     Dates: start: 20120910, end: 20120920
  2. AMLODIPINE [Concomitant]
     Dosage: 10 mg
     Route: 048
  3. COLCHICINE [Concomitant]
     Dosage: 0.5 mg
     Route: 048
     Dates: start: 20120909, end: 20120919
  4. ZYLORIC [Concomitant]
     Dosage: 100 mg
     Route: 048
     Dates: start: 20120919
  5. MEDROL [Concomitant]
     Dosage: 8 mg
     Route: 048
     Dates: start: 20120909, end: 20120919
  6. ENTEROL [Concomitant]
     Route: 048
     Dates: start: 20120909, end: 20120919
  7. TRANSTEC [Concomitant]
     Route: 062

REACTIONS (3)
  - Acute coronary syndrome [Recovered/Resolved]
  - Coronary artery thrombosis [Recovered/Resolved]
  - Coronary artery occlusion [Recovered/Resolved]
